FAERS Safety Report 9159268 (Version 1)
Quarter: 2013Q1

REPORT INFORMATION
  Report Type: Spontaneous
  Country: US (occurrence: None)
  Receive Date: 20130312
  Receipt Date: 20130312
  Transmission Date: 20140127
  Serious: No
  Sender: FDA-Public Use
  Company Number: None

PATIENT
  Sex: Female

DRUGS (1)
  1. BUPIVACAINE [Suspect]
     Indication: KNEE ARTHROPLASTY
     Dosage: 13.5 MG X1 INTRATHECAL
     Dates: start: 20131217

REACTIONS (2)
  - Drug ineffective [None]
  - Anaesthetic complication [None]
